FAERS Safety Report 23520820 (Version 1)
Quarter: 2024Q1

REPORT INFORMATION
  Report Type: Spontaneous
  Country: US (occurrence: US)
  Receive Date: 20240214
  Receipt Date: 20240214
  Transmission Date: 20240410
  Serious: Yes (Other)
  Sender: FDA-Public Use
  Company Number: US-TAKEDA-2024TUS013242

PATIENT
  Sex: Female

DRUGS (1)
  1. GAMMAGARD LIQUID [Suspect]
     Active Substance: HUMAN IMMUNOGLOBULIN G
     Indication: Product used for unknown indication
     Dosage: UNK
     Route: 065

REACTIONS (8)
  - Breast cancer [Unknown]
  - Blood creatine phosphokinase increased [Unknown]
  - Wheelchair user [Unknown]
  - Inability to afford medication [Unknown]
  - General physical health deterioration [Unknown]
  - Somnolence [Unknown]
  - Asthenia [Unknown]
  - Anxiety [Unknown]
